FAERS Safety Report 17811838 (Version 1)
Quarter: 2020Q2

REPORT INFORMATION
  Report Type: Spontaneous
  Country: US (occurrence: US)
  Receive Date: 20200521
  Receipt Date: 20200521
  Transmission Date: 20200714
  Serious: No
  Sender: FDA-Public Use
  Company Number: US-SA-2020SA128815

PATIENT
  Age: 55 Year
  Sex: Female

DRUGS (12)
  1. DUPIXENT [Suspect]
     Active Substance: DUPILUMAB
     Indication: DERMATITIS ATOPIC
     Dosage: 300 MG, QOW
     Route: 058
     Dates: start: 20200225
  2. TIZANIDINE. [Concomitant]
     Active Substance: TIZANIDINE
  3. CELECOXIB. [Concomitant]
     Active Substance: CELECOXIB
  4. ESTRADIOL. [Concomitant]
     Active Substance: ESTRADIOL
  5. CLOBETASOL [Concomitant]
     Active Substance: CLOBETASOL
  6. DULOXETINE. [Concomitant]
     Active Substance: DULOXETINE
  7. MEDROXYPROGESTERONE [Concomitant]
     Active Substance: MEDROXYPROGESTERONE
  8. VITAMIN D NOS [Concomitant]
     Active Substance: VITAMIN D NOS
  9. LIDO/PRILOCAINE [Concomitant]
  10. AMFETAMINE SULFATE;DEXAMFETAMINE SULFATE [Concomitant]
  11. PREGABALIN. [Concomitant]
     Active Substance: PREGABALIN
  12. TERBINAFINE. [Concomitant]
     Active Substance: TERBINAFINE

REACTIONS (2)
  - Dermatitis atopic [Not Recovered/Not Resolved]
  - Ear infection [Not Recovered/Not Resolved]

NARRATIVE: CASE EVENT DATE: 20200510
